FAERS Safety Report 14169963 (Version 1)
Quarter: 2017Q4

REPORT INFORMATION
  Report Type: Spontaneous
  Country: CN (occurrence: CN)
  Receive Date: 20171108
  Receipt Date: 20171108
  Transmission Date: 20180321
  Serious: Yes (Other)
  Sender: FDA-Public Use
  Company Number: CN-ASTRAZENECA-2017SF13109

PATIENT
  Age: 18967 Day
  Sex: Female
  Weight: 80 kg

DRUGS (3)
  1. IPRATROPIUM BROMIDE. [Suspect]
     Active Substance: IPRATROPIUM BROMIDE
     Indication: LUNG INFECTION
     Route: 055
     Dates: start: 20170904, end: 20170905
  2. SODIUM LACTATE RINGER^S [Concomitant]
     Indication: FLUID REPLACEMENT
     Route: 041
     Dates: start: 20170904, end: 20170905
  3. BUDESONIDE. [Suspect]
     Active Substance: BUDESONIDE
     Indication: INFECTION
     Route: 055
     Dates: start: 20170904, end: 20170905

REACTIONS (7)
  - Tachypnoea [Recovering/Resolving]
  - Nausea [Recovering/Resolving]
  - Dyspnoea [Recovering/Resolving]
  - Vomiting [Recovering/Resolving]
  - Dizziness [Recovering/Resolving]
  - Palpitations [Recovering/Resolving]
  - Asthma [Recovering/Resolving]

NARRATIVE: CASE EVENT DATE: 20170905
